FAERS Safety Report 21021770 (Version 1)
Quarter: 2022Q2

REPORT INFORMATION
  Report Type: Spontaneous
  Country: US (occurrence: US)
  Receive Date: 20220629
  Receipt Date: 20220629
  Transmission Date: 20220721
  Serious: No
  Sender: FDA-Public Use
  Company Number: US-BRISTOL-MYERS SQUIBB COMPANY-USA-20220207829

PATIENT
  Age: 82 Year
  Sex: Female

DRUGS (2)
  1. REVLIMID [Suspect]
     Active Substance: LENALIDOMIDE
     Indication: Plasma cell myeloma
     Dosage: FREQ: DAILY, DAYS 1-21 OF EACH 28 DAY CYCLE. TAKE WHOLE WITH WATER SAME TIME EACH DAY.
     Route: 048
  2. REVLIMID [Suspect]
     Active Substance: LENALIDOMIDE
     Dosage: FREQ: DAILY, DAYS 1-21 OF EACH 28 DAY CYCLE. TAKE WHOLE WITH WATER SAME TIME EACH DAY.
     Route: 048
     Dates: start: 20210909

REACTIONS (1)
  - No adverse event [Unknown]
